FAERS Safety Report 16701823 (Version 1)
Quarter: 2019Q3

REPORT INFORMATION
  Report Type: Spontaneous
  Country: US (occurrence: US)
  Receive Date: 20190814
  Receipt Date: 20190814
  Transmission Date: 20191004
  Serious: No
  Sender: FDA-Public Use
  Company Number: US-NVP-000017

PATIENT
  Age: 80 Year

DRUGS (1)
  1. CLOTRIMAZOLE. [Suspect]
     Active Substance: CLOTRIMAZOLE
     Indication: DERMATOPHYTOSIS OF NAIL
     Dosage: SOLUTION
     Route: 065

REACTIONS (2)
  - Product container issue [Unknown]
  - No adverse event [Unknown]
